FAERS Safety Report 8089534-9 (Version None)
Quarter: 2012Q1

REPORT INFORMATION
  Report Type: 
  Country: None (occurrence: None)
  Receive Date: 20120128
  Receipt Date: 20110617
  Transmission Date: 20120608
  Serious: No
  Sender: FDA-Public Use
  Company Number: US-ABBOTT-11P-163-0733258-00

PATIENT
  Sex: Female

DRUGS (4)
  1. HUMIRA [Suspect]
     Indication: RHEUMATOID ARTHRITIS
     Route: 058
     Dates: start: 20110611
  2. PLAQUENIL [Concomitant]
     Indication: RHEUMATOID ARTHRITIS
     Route: 048
  3. UNKNOWN INHALERS [Concomitant]
     Indication: ASTHMA
     Route: 055
  4. ANTIVERT [Concomitant]
     Indication: HEADACHE

REACTIONS (6)
  - DIZZINESS [None]
  - FATIGUE [None]
  - CRYING [None]
  - URTICARIA [None]
  - PRURITUS [None]
  - ASTHMA [None]
